FAERS Safety Report 17418764 (Version 8)
Quarter: 2024Q3

REPORT INFORMATION
  Report Type: Report from Study
  Country: CA (occurrence: None)
  Receive Date: 20200214
  Receipt Date: 20240725
  Transmission Date: 20241017
  Serious: Yes (Other)
  Sender: ORION
  Company Number: CA-ORION CORPORATION ORION PHARMA-TREX2020-0847

PATIENT
  Age: 31 Year
  Sex: Female
  Weight: 46 kg

DRUGS (17)
  1. METHOTREXATE [Suspect]
     Active Substance: METHOTREXATE
     Indication: Rheumatoid arthritis
  2. ACTEMRA [Suspect]
     Active Substance: TOCILIZUMAB
     Indication: Rheumatoid arthritis
  3. ACTEMRA [Suspect]
     Active Substance: TOCILIZUMAB
     Dosage: MONTH
  4. ACTEMRA [Suspect]
     Active Substance: TOCILIZUMAB
     Dosage: MONTH
  5. ACTEMRA [Suspect]
     Active Substance: TOCILIZUMAB
     Dosage: MONTH
  6. ACTEMRA [Suspect]
     Active Substance: TOCILIZUMAB
     Dosage: MONTH
  7. ACTEMRA [Suspect]
     Active Substance: TOCILIZUMAB
     Dosage: MONTH
  8. ACTEMRA [Suspect]
     Active Substance: TOCILIZUMAB
     Dosage: MONTH
  9. ACTEMRA [Suspect]
     Active Substance: TOCILIZUMAB
     Dosage: MONTH
  10. ACTEMRA [Suspect]
     Active Substance: TOCILIZUMAB
     Dosage: MONTH
  11. ACTEMRA [Suspect]
     Active Substance: TOCILIZUMAB
     Dosage: MONTH
  12. ACTEMRA [Suspect]
     Active Substance: TOCILIZUMAB
     Dosage: MONTH
  13. ACTEMRA [Suspect]
     Active Substance: TOCILIZUMAB
  14. ACTEMRA [Suspect]
     Active Substance: TOCILIZUMAB
     Dosage: MONTH
  15. ACTEMRA [Suspect]
     Active Substance: TOCILIZUMAB
     Dosage: MONTH
  16. ESOMEPRAZOLE MAGNESIUM\NAPROXEN [Concomitant]
     Active Substance: ESOMEPRAZOLE MAGNESIUM\NAPROXEN
  17. PREDNISONE [Concomitant]
     Active Substance: PREDNISONE

REACTIONS (13)
  - Abdominal pain upper [Not Recovered/Not Resolved]
  - Cough [Not Recovered/Not Resolved]
  - Ear infection [Not Recovered/Not Resolved]
  - Heart rate decreased [Not Recovered/Not Resolved]
  - Nasopharyngitis [Recovered/Resolved]
  - Angiopathy [Not Recovered/Not Resolved]
  - Poor venous access [Not Recovered/Not Resolved]
  - Weight increased [Not Recovered/Not Resolved]
  - Blood pressure diastolic abnormal [Not Recovered/Not Resolved]
  - Blood pressure diastolic decreased [Not Recovered/Not Resolved]
  - Abdominal discomfort [Not Recovered/Not Resolved]
  - Abdominal pain [Not Recovered/Not Resolved]
  - Weight decreased [Not Recovered/Not Resolved]
